FAERS Safety Report 7409296-5 (Version None)
Quarter: 2011Q2

REPORT INFORMATION
  Report Type: 
  Country: None (occurrence: None)
  Receive Date: 20110412
  Receipt Date: 20110405
  Transmission Date: 20111010
  Serious: Yes (Disabling)
  Sender: FDA-Public Use
  Company Number: B0711433A

PATIENT
  Sex: Female
  Weight: 47 kg

DRUGS (18)
  1. METHOTREXATE [Concomitant]
     Indication: IMMUNOSUPPRESSION
     Dosage: 10MG PER DAY
     Route: 065
     Dates: start: 20091119, end: 20091119
  2. KYTRIL [Concomitant]
     Dosage: 3MG PER DAY
     Dates: end: 20091124
  3. METHOTREXATE [Concomitant]
     Dosage: 10MG PER DAY
     Route: 065
     Dates: start: 20091124, end: 20091124
  4. GASTER [Concomitant]
     Dosage: 20MG PER DAY
     Route: 048
     Dates: start: 20091112
  5. DENOSINE [Concomitant]
     Dosage: 200MG PER DAY
     Dates: end: 20091117
  6. PREDONINE [Concomitant]
     Indication: IMMUNOSUPPRESSION
     Dosage: 10MG PER DAY
     Route: 065
     Dates: start: 20091210
  7. PREDONINE [Concomitant]
     Dosage: 20MG PER DAY
     Route: 065
     Dates: start: 20091112, end: 20091115
  8. FLUDARA [Concomitant]
     Indication: STEM CELL TRANSPLANT
     Dosage: 30MGM2 PER DAY
     Route: 042
     Dates: start: 20091111, end: 20091116
  9. CYCLOSPORINE [Concomitant]
     Indication: IMMUNOSUPPRESSION
     Dosage: 150MG PER DAY
     Route: 065
     Dates: start: 20091112, end: 20091114
  10. TACROLIMUS HYDRATE [Concomitant]
     Indication: IMMUNOSUPPRESSION
     Dosage: .9MG PER DAY
     Route: 065
     Dates: start: 20091117, end: 20091221
  11. METHOTREXATE [Concomitant]
     Dosage: 10MG PER DAY
     Route: 065
     Dates: start: 20091121, end: 20091121
  12. BACCIDAL [Concomitant]
     Dosage: 300MG PER DAY
     Route: 048
     Dates: start: 20091111, end: 20091203
  13. MEXITIL [Concomitant]
     Dosage: 200MG PER DAY
     Route: 048
     Dates: start: 20091112
  14. ALKERAN [Suspect]
     Indication: STEM CELL TRANSPLANT
     Dosage: 70MGM2 PER DAY
     Route: 042
     Dates: start: 20091115, end: 20091116
  15. LASTET [Suspect]
     Indication: STEM CELL TRANSPLANT
     Dosage: 100MGM2 PER DAY
     Route: 065
     Dates: start: 20091115, end: 20091116
  16. NEUTROGIN [Concomitant]
     Dates: start: 20091123, end: 20091204
  17. RENIVACE [Concomitant]
     Dosage: 2.5MG PER DAY
     Route: 048
     Dates: start: 20091113, end: 20091130
  18. DIAMOX [Concomitant]
     Dosage: 250MG PER DAY
     Dates: end: 20091206

REACTIONS (4)
  - VOMITING [None]
  - MUCOUS MEMBRANE DISORDER [None]
  - ABDOMINAL PAIN [None]
  - DIARRHOEA [None]
